FAERS Safety Report 5647081-5 (Version None)
Quarter: 2008Q1

REPORT INFORMATION
  Report Type: 
  Country: None (occurrence: None)
  Receive Date: 20080228
  Receipt Date: 20080228
  Transmission Date: 20080703
  Serious: Yes (Life-Threatening, Hospitalization)
  Sender: FDA-Public Use
  Company Number: None

PATIENT
  Age: 77 Year
  Sex: Female
  Weight: 76.3 kg

DRUGS (2)
  1. RISPERDAL [Suspect]
     Indication: DEMENTIA
     Dosage: 2 MG BID PO
     Route: 048
     Dates: start: 20070101, end: 20080223
  2. COUMADIN [Suspect]
     Indication: ARTERIOSCLEROSIS
     Dosage: 5 MG DAILY PO
     Route: 048
     Dates: start: 20070101, end: 20080223

REACTIONS (3)
  - CAROTID ARTERY OCCLUSION [None]
  - CEREBROVASCULAR ACCIDENT [None]
  - SUBDURAL HAEMATOMA [None]
